FAERS Safety Report 25489963 (Version 1)
Quarter: 2025Q2

REPORT INFORMATION
  Report Type: Spontaneous
  Country: CA (occurrence: CA)
  Receive Date: 20250628
  Receipt Date: 20250628
  Transmission Date: 20250717
  Serious: Yes (Hospitalization, Other)
  Sender: AMGEN
  Company Number: CA-AMGEN-CANSP2025122110

PATIENT

DRUGS (2)
  1. USTEKINUMAB [Suspect]
     Active Substance: USTEKINUMAB
     Indication: Crohn^s disease
     Route: 065
  2. USTEKINUMAB [Suspect]
     Active Substance: USTEKINUMAB
     Indication: Colitis ulcerative

REACTIONS (22)
  - Colitis [Unknown]
  - Small intestinal obstruction [Unknown]
  - Stomal hernia [Unknown]
  - Anaemia [Unknown]
  - Abdominal pain [Unknown]
  - Abdominal abscess [Unknown]
  - Gestational diabetes [Unknown]
  - Abortion spontaneous [Unknown]
  - Postpartum haemorrhage [Unknown]
  - Caesarean section [Unknown]
  - Colon dysplasia [Unknown]
  - Stillbirth [Unknown]
  - Crohn^s disease [Unknown]
  - Anal abscess [Unknown]
  - Stoma complication [Unknown]
  - Abortion induced [Unknown]
  - Gestational hypertension [Unknown]
  - Pre-eclampsia [Unknown]
  - Infection [Unknown]
  - C-reactive protein increased [Unknown]
  - Faecal calprotectin increased [Unknown]
  - Maternal exposure during pregnancy [Unknown]
